FAERS Safety Report 4331422-5 (Version None)
Quarter: 2004Q2

REPORT INFORMATION
  Report Type: 
  Country: None (occurrence: None)
  Receive Date: 20040402
  Receipt Date: 20040402
  Transmission Date: 20050107
  Serious: No
  Sender: FDA-Public Use
  Company Number: None

PATIENT
  Sex: Female
  Weight: 73.5 kg

DRUGS (23)
  1. APROTININ [Suspect]
     Dosage: 200 ML ONCE OTHER
     Route: 050
     Dates: start: 20040229, end: 20040229
  2. AMPHO NEBS [Concomitant]
  3. VFEND [Concomitant]
  4. BACTRIM [Concomitant]
  5. ALBUTEROL [Concomitant]
  6. CELLCEPT [Concomitant]
  7. TACROLIMUS [Concomitant]
  8. PREDNISONE [Concomitant]
  9. COLACE [Concomitant]
  10. FOSAMAX [Concomitant]
  11. VIREAD [Concomitant]
  12. HUMALOG [Concomitant]
  13. LANTUS [Concomitant]
  14. LASIX [Concomitant]
  15. MULTI-VITAMINS [Concomitant]
  16. MYCELEX [Concomitant]
  17. TROCHES [Concomitant]
  18. PROTONIX [Concomitant]
  19. SYNTHROID [Concomitant]
  20. TOPROL-XL [Concomitant]
  21. VICODIN [Concomitant]
  22. ZOCOR [Concomitant]
  23. VALCYTE [Concomitant]

REACTIONS (4)
  - ANASTOMOTIC COMPLICATION [None]
  - BACTERIAL INFECTION [None]
  - CANDIDIASIS [None]
  - WOUND DEHISCENCE [None]
